FAERS Safety Report 26097479 (Version 1)
Quarter: 2025Q4

REPORT INFORMATION
  Report Type: Spontaneous
  Country: US (occurrence: US)
  Receive Date: 20251127
  Receipt Date: 20251127
  Transmission Date: 20260118
  Serious: Yes (Death, Life-Threatening, Hospitalization, Other)
  Sender: VELOXIS PHARMACEUTICALS
  Company Number: US-MLMSERVICE-20251105-PI695417-00271-1

PATIENT
  Age: 34 Year

DRUGS (4)
  1. TACROLIMUS [Suspect]
     Active Substance: TACROLIMUS
     Indication: Dermatomyositis
     Dosage: UNK
  2. HYDROXYCHLOROQUINE [Suspect]
     Active Substance: HYDROXYCHLOROQUINE
     Indication: Dermatomyositis
     Dosage: UNK
  3. METHOTREXATE [Suspect]
     Active Substance: METHOTREXATE
     Indication: Dermatomyositis
     Dosage: UNK
  4. PREDNISONE [Suspect]
     Active Substance: PREDNISONE
     Indication: Dermatomyositis

REACTIONS (13)
  - Distributive shock [Fatal]
  - Haemophagocytic lymphohistiocytosis [Fatal]
  - Haemophagocytic lymphohistiocytosis [Fatal]
  - Lactic acidosis [Fatal]
  - Renal impairment [Fatal]
  - Disseminated intravascular coagulation [Fatal]
  - Hepatic function abnormal [Fatal]
  - Respiratory failure [Fatal]
  - Encephalopathy [Fatal]
  - Systemic inflammatory response syndrome [Fatal]
  - Bullous haemorrhagic dermatosis [Fatal]
  - Pseudomonal sepsis [Fatal]
  - Histoplasmosis disseminated [Fatal]
